FAERS Safety Report 9626186 (Version 2)
Quarter: 2013Q4

REPORT INFORMATION
  Report Type: Spontaneous
  Country: US (occurrence: US)
  Receive Date: 20131016
  Receipt Date: 20131024
  Transmission Date: 20140711
  Serious: Yes (Death)
  Sender: FDA-Public Use
  Company Number: PHEH2013US021350

PATIENT
  Age: 69 Year
  Sex: Male

DRUGS (15)
  1. ZOMETA [Suspect]
     Dosage: UNK UKN, UNK
  2. HYDROMORPHONE [Concomitant]
     Dosage: UNK UKN, UNK
  3. NYSTATIN [Concomitant]
     Dosage: UNK UKN, UNK
  4. MEGESTROL [Concomitant]
     Dosage: 40 MG, BID
  5. METREN//METRONIDAZOLE [Concomitant]
     Dosage: 500 MG
  6. KLOR-CON [Concomitant]
     Dosage: UNK UKN, UNK
  7. REMERON [Concomitant]
     Dosage: 45 MG
  8. ATORVASTATIN [Concomitant]
     Dosage: 40 MG
  9. ALBUTEROL [Concomitant]
     Dosage: UNK UKN, UNK
  10. HYDROCODONE [Concomitant]
     Dosage: 10 MG, PRN
  11. AMIODARONE [Concomitant]
     Dosage: 200 MG
  12. METOPROLOL [Concomitant]
     Dosage: 25 MG
  13. ZOLOFT [Concomitant]
     Dosage: 50 MG
  14. CALCIUM [Concomitant]
     Dosage: UNK UKN, UNK
  15. PROTONIX [Concomitant]
     Dosage: 400 MG, QD

REACTIONS (1)
  - Death [Fatal]
